FAERS Safety Report 14012475 (Version 2)
Quarter: 2017Q4

REPORT INFORMATION
  Report Type: Spontaneous
  Country: FR (occurrence: FR)
  Receive Date: 20170926
  Receipt Date: 20171102
  Transmission Date: 20180321
  Serious: Yes (Hospitalization)
  Sender: FDA-Public Use
  Company Number: FR-PFIZER INC-2017410206

PATIENT
  Age: 62 Year
  Sex: Male

DRUGS (1)
  1. AMLOR [Suspect]
     Active Substance: AMLODIPINE BESYLATE
     Indication: HYPERTENSION
     Dosage: UNK
     Route: 048
     Dates: start: 20170904, end: 20170908

REACTIONS (3)
  - Neutropenia [Recovering/Resolving]
  - Thrombocytopenia [Recovering/Resolving]
  - Hypersensitivity [Recovering/Resolving]

NARRATIVE: CASE EVENT DATE: 20170907
